FAERS Safety Report 8317176-6 (Version None)
Quarter: 2012Q2

REPORT INFORMATION
  Report Type: 
  Country: None (occurrence: None)
  Receive Date: 20120427
  Receipt Date: 20120416
  Transmission Date: 20120825
  Serious: Yes (Hospitalization, Other)
  Sender: FDA-Public Use
  Company Number: US-CELGENEUS-163-21880-11093099

PATIENT
  Sex: Female
  Weight: 146.64 kg

DRUGS (41)
  1. CALCIUM CARBONATE [Concomitant]
     Dosage: 1000 MILLIGRAM
     Route: 048
  2. LORATADINE [Concomitant]
     Dosage: 10 MILLIGRAM
     Route: 048
  3. BENADRYL [Concomitant]
     Dosage: 150 MILLIGRAM
     Route: 048
     Dates: start: 20110815
  4. PROCARDIA [Concomitant]
     Dosage: 10 MILLIGRAM
     Route: 048
     Dates: start: 20090116
  5. NEUPOGEN [Concomitant]
     Route: 058
  6. REGULAR INSULIN [Concomitant]
     Route: 058
  7. FEXOFENADINE [Concomitant]
     Dosage: 180 MILLIGRAM
     Route: 048
  8. LASIX [Concomitant]
     Dosage: 40 MILLIGRAM
     Route: 048
  9. LISINOPRIL [Concomitant]
     Dosage: 20 MILLIGRAM
     Route: 048
  10. TYLENOL (CAPLET) [Concomitant]
     Dosage: 625 MILLIGRAM
     Route: 048
     Dates: start: 20110727
  11. REVLIMID [Suspect]
     Indication: MULTIPLE MYELOMA
     Dosage: 10 MILLIGRAM
     Route: 048
     Dates: start: 20100720, end: 20110712
  12. NEUPOGEN [Concomitant]
     Route: 065
  13. FOLIC ACID [Concomitant]
     Dosage: 1 MILLIGRAM
     Route: 048
  14. GLUCOTROL XL [Concomitant]
     Dosage: 10 MILLIGRAM
     Route: 048
  15. NORVASC [Concomitant]
     Dosage: 10 MILLIGRAM
     Route: 048
  16. CALCIUM CARBONATE [Concomitant]
     Dosage: 500-200MG
     Route: 048
  17. OXYCODONE HCL AND ACETAMINOPHEN [Concomitant]
     Dosage: 5-500MG
     Route: 048
  18. FLUTICASONE FUROATE [Concomitant]
     Route: 045
  19. HUMULIN R [Concomitant]
     Dosage: 2-25 UNITS
     Route: 058
  20. SOLU-MEDROL [Concomitant]
     Dosage: 125MG-80MG
     Route: 041
  21. MAGNESIUM SULFATE [Concomitant]
     Dosage: 4 GRAM
     Route: 041
  22. POTASSIUM CHLORIDE [Concomitant]
     Route: 041
  23. PANTOPRAZOLE [Concomitant]
     Dosage: 40 MILLIGRAM
     Route: 041
  24. PROCARDIA [Concomitant]
     Dosage: 10 MILLIGRAM
     Route: 060
     Dates: start: 20110712
  25. CATAPRES [Concomitant]
     Dosage: .2 MILLIGRAM
     Route: 048
  26. POTASSIUM CHLORIDE [Concomitant]
     Dosage: 20 MILLIEQUIVALENTS
     Route: 048
  27. HYDROXYZINE HCL [Concomitant]
     Dosage: 25 MILLIGRAM
     Route: 048
  28. CALCIUM +VITAMIN D [Concomitant]
     Dosage: 600-200MG
     Route: 048
  29. NPH INSULIN [Concomitant]
     Route: 058
  30. DECADRON [Concomitant]
     Route: 065
     Dates: start: 20110101
  31. CIPROFLOXACIN [Concomitant]
     Dosage: 500 MILLIGRAM
     Route: 048
  32. BENADRYL [Concomitant]
     Dosage: 50 MILLIGRAM
     Route: 048
     Dates: start: 20110727
  33. ZOMETA [Concomitant]
     Dosage: 4 MILLIGRAM
     Route: 065
     Dates: start: 20100208
  34. RITUXAN [Concomitant]
     Route: 065
     Dates: start: 20110101
  35. ASTELIN [Concomitant]
     Dosage: 137 MILLIGRAM
     Route: 045
  36. VINCRISTINE [Concomitant]
     Dosage: 2 MILLIGRAM
     Route: 065
     Dates: start: 20110817
  37. FLU VACCINE [Concomitant]
     Dosage: .8 MILLIGRAM
     Route: 030
     Dates: start: 20100610
  38. METFORMIN HCL [Concomitant]
     Dosage: 500 MILLIGRAM
     Route: 048
  39. SINGULAIR [Concomitant]
     Dosage: 10 MILLIGRAM
     Route: 048
  40. NASACORT [Concomitant]
     Dosage: 55 MICROGRAM
     Route: 045
  41. PLASMAPHERESIS BLOOD-PACK SYSTEM INFUSION [Concomitant]

REACTIONS (1)
  - MYELODYSPLASTIC SYNDROME [None]
